FAERS Safety Report 15402773 (Version 1)
Quarter: 2018Q3

REPORT INFORMATION
  Report Type: Spontaneous
  Country: None (occurrence: US)
  Receive Date: 20180919
  Receipt Date: 20180919
  Transmission Date: 20181010
  Serious: No
  Sender: FDA-Public Use
  Company Number: US-MEDAC PHARMA, INC.-2055111

PATIENT
  Age: 53 Year
  Sex: Female
  Weight: 102.27 kg

DRUGS (11)
  1. RASUVO [Suspect]
     Active Substance: METHOTREXATE SODIUM
     Indication: RHEUMATOID ARTHRITIS
     Route: 058
     Dates: start: 2018
  2. VITAMIN D [Concomitant]
     Active Substance: CHOLECALCIFEROL
  3. ACTEMRA [Concomitant]
     Active Substance: TOCILIZUMAB
     Route: 051
  4. RESTASIS [Concomitant]
     Active Substance: CYCLOSPORINE
  5. HYDROCHLOROTHIAZIDE. [Concomitant]
     Active Substance: HYDROCHLOROTHIAZIDE
  6. PRILOSEC [Concomitant]
     Active Substance: OMEPRAZOLE MAGNESIUM
  7. LATANOPROST. [Concomitant]
     Active Substance: LATANOPROST
  8. MULTI?VITAMIN [Concomitant]
     Active Substance: .ALPHA.-TOCOPHEROL ACETATE, DL-\ASCORBIC ACID\CYANOCOBALAMIN\FLUORIDE ION\FOLIC ACID\NIACIN\PYRIDOXINE\RIBOFLAVIN\THIAMINE\VITAMIN A\VITAMIN D
  9. GLIMEPIRIDE. [Concomitant]
     Active Substance: GLIMEPIRIDE
  10. LINZESS [Concomitant]
     Active Substance: LINACLOTIDE
  11. BYETTA [Concomitant]
     Active Substance: EXENATIDE

REACTIONS (2)
  - Vulvovaginal mycotic infection [Recovered/Resolved]
  - Urinary tract infection [Recovered/Resolved]
